FAERS Safety Report 7986869-2 (Version None)
Quarter: 2011Q4

REPORT INFORMATION
  Report Type: 
  Country: None (occurrence: None)
  Receive Date: 20111216
  Receipt Date: 20110302
  Transmission Date: 20120403
  Serious: No
  Sender: FDA-Public Use
  Company Number: US-BRISTOL-MYERS SQUIBB COMPANY-15582968

PATIENT
  Age: 41 Year
  Sex: Female

DRUGS (2)
  1. CYMBALTA [Suspect]
  2. ABILIFY [Suspect]
     Indication: DEPRESSION
     Dosage: INITIATED AT 6MG TITRATED TO 4MGX1 WK 2MGX2DAYS

REACTIONS (2)
  - SEDATION [None]
  - SOMNOLENCE [None]
